FAERS Safety Report 18702677 (Version 1)
Quarter: 2021Q1

REPORT INFORMATION
  Report Type: Spontaneous
  Country: SE (occurrence: SE)
  Receive Date: 20210105
  Receipt Date: 20210105
  Transmission Date: 20210419
  Serious: Yes (Hospitalization, Other)
  Sender: FDA-Public Use
  Company Number: SE-TEVA-2020-SE-1864134

PATIENT
  Age: 11 Year
  Sex: Male

DRUGS (7)
  1. XOLAIR [Suspect]
     Active Substance: OMALIZUMAB
     Indication: CHRONIC SPONTANEOUS URTICARIA
     Dosage: 300MG
     Route: 058
     Dates: start: 20200622, end: 20201028
  2. MONTELUKAST [Concomitant]
     Active Substance: MONTELUKAST SODIUM
     Dates: start: 20200604
  3. OMECAT 20 MG ENTEROKAPSEL, HARD [Concomitant]
  4. ATARAX 10 MG FILMDRAGERAD TABLETT [Concomitant]
     Dates: start: 20200520
  5. PREDNISOLONE. [Suspect]
     Active Substance: PREDNISOLONE
     Indication: CHRONIC SPONTANEOUS URTICARIA
     Dosage: REDUCE 30 MG IN ONE WEEK, 20 MG IN 5 DAYS, 10 MG IN 5 DAYS, 30 MG
     Route: 048
     Dates: start: 20200603
  6. PREDNISOLONE. [Suspect]
     Active Substance: PREDNISOLONE
     Dosage: INCREASED TO 30 MG, SLOWLY DECREASED TO 10 MG., 30 MG
     Route: 048
     Dates: start: 20200618
  7. AERIUS 5 MG FILMDRAGERAD TABLETT [Concomitant]
     Dates: start: 20200218

REACTIONS (1)
  - Dysuria [Recovered/Resolved]

NARRATIVE: CASE EVENT DATE: 20201005
